FAERS Safety Report 12156632 (Version 1)
Quarter: 2016Q1

REPORT INFORMATION
  Report Type: Spontaneous
  Country: US (occurrence: US)
  Receive Date: 20160307
  Receipt Date: 20160307
  Transmission Date: 20160526
  Serious: No
  Sender: FDA-Public Use
  Company Number: US-SHIRE-US201602773

PATIENT
  Age: 32 Year
  Sex: Male
  Weight: 108.84 kg

DRUGS (1)
  1. VYVANSE [Suspect]
     Active Substance: LISDEXAMFETAMINE DIMESYLATE
     Indication: ATTENTION DEFICIT/HYPERACTIVITY DISORDER
     Dosage: 70 MG, 1X/DAY:QD
     Route: 048

REACTIONS (3)
  - No adverse event [Recovered/Resolved]
  - Intentional product misuse [Recovered/Resolved]
  - Drug diversion [Recovered/Resolved]

NARRATIVE: CASE EVENT DATE: 20160228
